FAERS Safety Report 5061326-4 (Version None)
Quarter: 2006Q3

REPORT INFORMATION
  Report Type: 
  Country: None (occurrence: None)
  Receive Date: 20060719
  Receipt Date: 20060719
  Transmission Date: 20061208
  Serious: No
  Sender: FDA-Public Use
  Company Number: None

PATIENT
  Sex: Male
  Weight: 100.9 kg

DRUGS (1)
  1. VENLAFAXINE HCL [Suspect]
     Indication: DEPRESSION
     Dosage: 150MG CAPSULE Q8HOURS PO
     Route: 048
     Dates: start: 20060324, end: 20060412

REACTIONS (9)
  - AGITATION [None]
  - DYSKINESIA [None]
  - HYPERTENSION [None]
  - MENTAL STATUS CHANGES [None]
  - PARANOIA [None]
  - PYREXIA [None]
  - SEROTONIN SYNDROME [None]
  - TACHYCARDIA [None]
  - TACHYPNOEA [None]
